FAERS Safety Report 6699376-4 (Version None)
Quarter: 2010Q2

REPORT INFORMATION
  Report Type: 
  Country: None (occurrence: None)
  Receive Date: 20100427
  Receipt Date: 20100419
  Transmission Date: 20101027
  Serious: Yes (Hospitalization)
  Sender: FDA-Public Use
  Company Number: JP-ABBOTT-10P-087-0639510-00

PATIENT
  Sex: Female

DRUGS (6)
  1. HUMIRA [Suspect]
     Indication: RHEUMATOID ARTHRITIS
     Route: 058
     Dates: start: 20100208, end: 20100323
  2. METHOTREXATE [Concomitant]
     Indication: RHEUMATOID ARTHRITIS
     Dosage: 6 MG PER WEEK
     Route: 048
     Dates: start: 20080121, end: 20100405
  3. FOLIC ACID [Concomitant]
     Indication: RHEUMATOID ARTHRITIS
     Dosage: 5 MG PER WEEK
     Route: 048
     Dates: start: 20080512, end: 20100405
  4. PREDNISOLONE [Concomitant]
     Indication: RHEUMATOID ARTHRITIS
     Dosage: 5 MG DAILY
     Route: 048
     Dates: start: 19991224, end: 20100405
  5. INDOMETACIN FARNESIL [Concomitant]
     Indication: RHEUMATOID ARTHRITIS
     Dosage: 400 MG DAILY
     Route: 048
     Dates: start: 19991224, end: 20100405
  6. TEPRENONE [Concomitant]
     Indication: RHEUMATOID ARTHRITIS
     Dosage: 100 MG DAILY
     Route: 048
     Dates: start: 19991224, end: 20100405

REACTIONS (5)
  - ARTHRALGIA [None]
  - C-REACTIVE PROTEIN INCREASED [None]
  - JOINT SWELLING [None]
  - SYNOVIAL FLUID ANALYSIS ABNORMAL [None]
  - WHITE BLOOD CELL COUNT INCREASED [None]
